FAERS Safety Report 9669243 (Version 1)
Quarter: 2013Q4

REPORT INFORMATION
  Report Type: Spontaneous
  Country: US (occurrence: US)
  Receive Date: 20131105
  Receipt Date: 20131105
  Transmission Date: 20140711
  Serious: Yes (Other)
  Sender: FDA-Public Use
  Company Number: US-SA-2013SA112385

PATIENT
  Age: 56 Year
  Sex: Female

DRUGS (5)
  1. LANTUS SOLOSTAR [Suspect]
     Indication: TYPE 2 DIABETES MELLITUS
     Dosage: TAKEN FROM:STARTED 6 YEARS AGO DOSE:14 UNIT(S)
     Route: 058
  2. HUMALOG [Suspect]
     Route: 065
  3. SOLOSTAR [Concomitant]
     Indication: TYPE 2 DIABETES MELLITUS
  4. JANUVIA [Concomitant]
  5. GLIPIZIDE [Concomitant]

REACTIONS (9)
  - Fall [Unknown]
  - Upper limb fracture [Unknown]
  - Mass [Unknown]
  - Pruritus [Unknown]
  - Anxiety [Unknown]
  - Blood glucose increased [Unknown]
  - Blood glucose decreased [Unknown]
  - Injection site reaction [Unknown]
  - Expired drug administered [Unknown]
